FAERS Safety Report 16145821 (Version 1)
Quarter: 2019Q2

REPORT INFORMATION
  Report Type: Spontaneous
  Country: US (occurrence: US)
  Receive Date: 20190401
  Receipt Date: 20190401
  Transmission Date: 20190711
  Serious: Yes (Other)
  Sender: FDA-Public Use
  Company Number: None

PATIENT
  Age: 40 Year
  Sex: Female

DRUGS (3)
  1. BUPRENORPHINE NALOXONE TABLETS [Concomitant]
     Active Substance: BUPRENORPHINE HYDROCHLORIDE\NALOXONE HYDROCHLORIDE
     Dates: start: 20180226, end: 20180323
  2. SUBOXONE [Concomitant]
     Active Substance: BUPRENORPHINE HYDROCHLORIDE\NALOXONE HYDROCHLORIDE
     Dates: start: 20180323, end: 20190323
  3. BUP/NAL TABLETS, 8/2 MG [Suspect]
     Active Substance: BUPRENORPHINE\NALOXONE
     Indication: DRUG DEPENDENCE
     Route: 048
     Dates: start: 20180226, end: 20190327

REACTIONS (3)
  - Drug ineffective [None]
  - Drug withdrawal syndrome [None]
  - Drug dependence [None]

NARRATIVE: CASE EVENT DATE: 20190327
